FAERS Safety Report 16822343 (Version 2)
Quarter: 2020Q3

REPORT INFORMATION
  Report Type: Spontaneous
  Country: US (occurrence: US)
  Receive Date: 20190918
  Receipt Date: 20200817
  Transmission Date: 20201102
  Serious: Yes (Hospitalization)
  Sender: FDA-Public Use
  Company Number: US-ELI_LILLY_AND_COMPANY-US201909000962

PATIENT
  Age: 36 Year
  Sex: Female
  Weight: 67.5 kg

DRUGS (3)
  1. ASPIRIN 81 [Concomitant]
     Active Substance: ASPIRIN
     Indication: PRODUCT USED FOR UNKNOWN INDICATION
     Dosage: 81 MG, DAILY
     Route: 065
  2. XANAX [Concomitant]
     Active Substance: ALPRAZOLAM
     Indication: PRODUCT USED FOR UNKNOWN INDICATION
     Dosage: 5 MG, PRN
     Route: 065
  3. EMGALITY [Suspect]
     Active Substance: GALCANEZUMAB-GNLM
     Indication: HEADACHE
     Dosage: UNK, UNKNOWN
     Route: 065
     Dates: start: 20190823

REACTIONS (16)
  - Anxiety [Unknown]
  - Dizziness [Unknown]
  - Headache [Unknown]
  - Cerebrovascular accident [Unknown]
  - Palpitations [Unknown]
  - Back pain [Unknown]
  - Hot flush [Unknown]
  - Insomnia [Unknown]
  - Nausea [Unknown]
  - Abdominal pain upper [Unknown]
  - Feeling abnormal [Unknown]
  - Constipation [Unknown]
  - Panic attack [Unknown]
  - Visual impairment [Unknown]
  - Paraesthesia [Unknown]
  - Hypoaesthesia [Unknown]

NARRATIVE: CASE EVENT DATE: 2017
